FAERS Safety Report 5213998-9 (Version None)
Quarter: 2007Q1

REPORT INFORMATION
  Report Type: 
  Country: None (occurrence: None)
  Receive Date: 20070122
  Receipt Date: 20070112
  Transmission Date: 20070707
  Serious: Yes (Hospitalization)
  Sender: FDA-Public Use
  Company Number: US-JNJFOC-20070103424

PATIENT
  Sex: Male

DRUGS (2)
  1. FENTANYL TRANSDERMAL SYSTEM [Suspect]
     Indication: DRUG ABUSER
     Route: 065
  2. HEROIN [Suspect]
     Indication: DRUG ABUSER
     Route: 065

REACTIONS (2)
  - DRUG ABUSER [None]
  - URINARY TRACT INFECTION [None]
